FAERS Safety Report 9007450 (Version 1)
Quarter: 2013Q1

REPORT INFORMATION
  Report Type: Spontaneous
  Country: US (occurrence: US)
  Receive Date: 20130110
  Receipt Date: 20130110
  Transmission Date: 20140127
  Serious: No
  Sender: FDA-Public Use
  Company Number: US-B.I. PHARMACEUTICALS,INC./RIDGEFIELD-2012-BI-04232BP

PATIENT
  Age: 46 Year
  Sex: Male
  Weight: 80 kg

DRUGS (5)
  1. SPIRIVA [Suspect]
     Indication: CHRONIC OBSTRUCTIVE PULMONARY DISEASE
     Dosage: 18 MCG
     Route: 055
     Dates: start: 2005
  2. SPIRIVA [Suspect]
     Route: 048
     Dates: start: 20121221, end: 20121221
  3. PROAIR [Concomitant]
     Route: 055
  4. PREDNISONE [Concomitant]
     Dosage: 10 MG
     Route: 048
  5. ANTI-REJECTION DRUG [Concomitant]
     Route: 048

REACTIONS (4)
  - Arthralgia [Recovered/Resolved]
  - Gait disturbance [Recovered/Resolved]
  - Lung disorder [Not Recovered/Not Resolved]
  - Incorrect route of drug administration [Recovered/Resolved]
